FAERS Safety Report 9452869 (Version 1)
Quarter: 2013Q3

REPORT INFORMATION
  Report Type: Spontaneous
  Country: US (occurrence: None)
  Receive Date: 20130808
  Receipt Date: 20130808
  Transmission Date: 20140515
  Serious: Yes (Life-Threatening, Hospitalization, Other)
  Sender: FDA-Public Use
  Company Number: None

PATIENT
  Age: 32 Year
  Sex: Female
  Weight: 81.65 kg

DRUGS (11)
  1. STELARA [Suspect]
     Indication: PSORIASIS
     Dosage: STRENGTH:  45MG S.C. ?QUANTITY:  ONE INJX14?FREQUENCY:  Q12 WEEKS?HOW:  INJECTION SUB CUNAREOUS?
     Route: 058
     Dates: start: 20110825, end: 20130221
  2. ACYCLOVIR [Concomitant]
  3. ALBUTEROL [Concomitant]
  4. NEB [Concomitant]
  5. PULMICORT [Concomitant]
  6. FLORICET [Concomitant]
  7. ADVIL [Concomitant]
  8. KETOCONAZOLE [Concomitant]
  9. MONONESSA [Concomitant]
  10. ZANTAC [Concomitant]
  11. MAXAL [Concomitant]

REACTIONS (2)
  - Dyspnoea [None]
  - Drug ineffective [None]
